FAERS Safety Report 24567543 (Version 2)
Quarter: 2024Q4

REPORT INFORMATION
  Report Type: Report from Study
  Country: ES (occurrence: ES)
  Receive Date: 20241031
  Receipt Date: 20241106
  Transmission Date: 20250114
  Serious: Yes (Death, Life-Threatening, Other)
  Sender: ABBVIE
  Company Number: ES-JNJFOC-20241075102

PATIENT

DRUGS (1)
  1. IMBRUVICA [Suspect]
     Active Substance: IBRUTINIB
     Indication: Lymphocytic lymphoma
     Route: 048

REACTIONS (13)
  - Liver disorder [Fatal]
  - Pneumonia [Fatal]
  - Acidosis [Fatal]
  - Pneumonia chlamydial [Fatal]
  - Disease progression [Fatal]
  - Pneumonia moraxella [Fatal]
  - Pneumonia pseudomonal [Fatal]
  - Pneumonia influenzal [Fatal]
  - Toxicity to various agents [Unknown]
  - Infection [Unknown]
  - COVID-19 pneumonia [Fatal]
  - Neoplasm [Fatal]
  - Intestinal perforation [Fatal]
